FAERS Safety Report 9178611 (Version 3)
Quarter: 2013Q3

REPORT INFORMATION
  Report Type: Report from Study
  Country: FR (occurrence: FR)
  Receive Date: 20130321
  Receipt Date: 20130729
  Transmission Date: 20140515
  Serious: Yes (Hospitalization)
  Sender: FDA-Public Use
  Company Number: FR-ROCHE-1115011

PATIENT
  Age: 46 Year
  Sex: Female
  Weight: 94 kg

DRUGS (10)
  1. TRASTUZUMAB EMTANSINE [Suspect]
     Indication: BREAST CANCER
     Dosage: MOST RECENT DOSE WAS TAKEN ON 24/AUG/2012 (DOSE: 350 MG)
     Route: 042
     Dates: start: 20120511
  2. INNOHEP [Suspect]
     Indication: VENA CAVA THROMBOSIS
     Route: 065
     Dates: start: 20090909, end: 20120917
  3. RAMIPRIL [Concomitant]
     Indication: EJECTION FRACTION DECREASED
     Route: 065
     Dates: start: 20090203
  4. LAROXYL [Concomitant]
     Indication: DEPRESSION
     Route: 065
     Dates: start: 20120904, end: 20120906
  5. PRIMPERAN (FRANCE) [Concomitant]
     Indication: VOMITING
     Route: 065
     Dates: start: 20120903, end: 20120910
  6. IMOVANE [Concomitant]
     Indication: ANXIETY
     Route: 065
     Dates: start: 20120903
  7. ERYTHROCYTE CONCENTRATE [Concomitant]
     Indication: ANAEMIA
     Route: 065
     Dates: start: 20120905, end: 20120907
  8. CLARITYNE [Concomitant]
     Indication: HYPERSENSITIVITY
     Route: 065
     Dates: start: 20120906, end: 20120910
  9. BIONOLYTE G5 [Concomitant]
     Indication: DEHYDRATION
     Route: 065
     Dates: start: 20120903, end: 20120910
  10. TOPALGIC [Concomitant]
     Indication: PAIN IN EXTREMITY
     Route: 065
     Dates: start: 20121005

REACTIONS (1)
  - Muscle haemorrhage [Recovered/Resolved]
